FAERS Safety Report 17591950 (Version 1)
Quarter: 2020Q1

REPORT INFORMATION
  Report Type: Spontaneous
  Country: US (occurrence: US)
  Receive Date: 20200327
  Receipt Date: 20200327
  Transmission Date: 20200409
  Serious: Yes (Other)
  Sender: FDA-Public Use
  Company Number: US-FRESENIUS KABI-FK202003089

PATIENT
  Age: 58 Year
  Sex: Male

DRUGS (11)
  1. MAGNESIUM SULFATE (MANUFACTURER UNKNOWN) [Suspect]
     Active Substance: MAGNESIUM SULFATE
     Indication: ANALGESIC THERAPY
     Dosage: CONTINUOUS
     Route: 065
  2. PROPOFOL. [Concomitant]
     Active Substance: PROPOFOL
     Indication: INDUCTION OF ANAESTHESIA
     Dosage: UNKNOWN
     Route: 065
  3. DESFLURANE. [Suspect]
     Active Substance: DESFLURANE
     Indication: MAINTENANCE OF ANAESTHESIA
     Dosage: UNKNOWN
     Route: 065
  4. ONDANSETRON [Concomitant]
     Active Substance: ONDANSETRON
     Indication: PROPHYLAXIS OF NAUSEA AND VOMITING
     Dosage: UNKNOWN
     Route: 065
  5. LIDOCAINE. [Concomitant]
     Active Substance: LIDOCAINE
     Indication: ANALGESIC THERAPY
     Dosage: UNKNOWN
     Route: 065
  6. ESMOLOL [Concomitant]
     Active Substance: ESMOLOL HYDROCHLORIDE
     Indication: INDUCTION OF ANAESTHESIA
     Dosage: UNKNOWN
     Route: 065
  7. VECURONIUM (MANUFACTURER UNKNOWN) [Suspect]
     Active Substance: VECURONIUM BROMIDE
     Route: 065
  8. KETAMINE [Concomitant]
     Active Substance: KETAMINE
     Indication: INDUCTION OF ANAESTHESIA
     Dosage: UNKNOWN
     Route: 065
  9. VECURONIUM (MANUFACTURER UNKNOWN) [Suspect]
     Active Substance: VECURONIUM BROMIDE
     Indication: HYPOTONIA
     Route: 065
  10. LIDOCAINE. [Concomitant]
     Active Substance: LIDOCAINE
     Indication: INDUCTION OF ANAESTHESIA
  11. DEXAMETHASONE. [Concomitant]
     Active Substance: DEXAMETHASONE
     Indication: PROPHYLAXIS OF NAUSEA AND VOMITING
     Dosage: UNKNOWN
     Route: 065

REACTIONS (1)
  - Neuromuscular block prolonged [Recovered/Resolved]
